FAERS Safety Report 19034341 (Version 4)
Quarter: 2021Q3

REPORT INFORMATION
  Report Type: Report from Study
  Country: JP (occurrence: JP)
  Receive Date: 20210319
  Receipt Date: 20210830
  Transmission Date: 20211014
  Serious: Yes (Other)
  Sender: FDA-Public Use
  Company Number: JP-GLAXOSMITHKLINE-JP2021JPN062892

PATIENT
  Age: 9 Decade
  Sex: Male
  Weight: 46 kg

DRUGS (24)
  1. PREDNISOLONE. [Suspect]
     Active Substance: PREDNISOLONE
     Dosage: 12.5 MG, 1D
     Route: 048
     Dates: start: 20180620, end: 20180703
  2. PREDNISOLONE. [Suspect]
     Active Substance: PREDNISOLONE
     Dosage: 20 MG, 1D
     Route: 048
     Dates: start: 20180410, end: 20180509
  3. TAKECAB [Concomitant]
     Active Substance: VONOPRAZAN FUMARATE
  4. TRAZENTA [Concomitant]
     Active Substance: LINAGLIPTIN
  5. ENDOXAN [Suspect]
     Active Substance: CYCLOPHOSPHAMIDE
     Dosage: UNK
     Dates: start: 20180223
  6. PREDNISOLONE. [Suspect]
     Active Substance: PREDNISOLONE
     Indication: CENTRAL NERVOUS SYSTEM LUPUS
     Dosage: 40 MG, 1D
     Route: 048
     Dates: start: 20180320, end: 20180327
  7. PREDNISOLONE. [Suspect]
     Active Substance: PREDNISOLONE
     Dosage: 10 MG, 1D
     Route: 048
     Dates: start: 20180704, end: 20180807
  8. BELIMUMAB [Suspect]
     Active Substance: BELIMUMAB
     Indication: CENTRAL NERVOUS SYSTEM LUPUS
     Dosage: 10 MG/KG, ONCE IN 4 WEEKS
     Route: 041
     Dates: start: 20180509, end: 20180808
  9. BELIMUMAB [Suspect]
     Active Substance: BELIMUMAB
     Dosage: 10 MG/KG, ONCE IN 4 WEEKS
     Route: 041
     Dates: start: 20180907, end: 20181005
  10. PREDNISOLONE. [Suspect]
     Active Substance: PREDNISOLONE
     Dosage: 30 MG, 1D
     Route: 048
     Dates: start: 20180328, end: 20180409
  11. EDIROL [Concomitant]
     Active Substance: ELDECALCITOL
  12. FUNGIZONE ORAL SUSPENSION [Concomitant]
     Indication: ANTIFUNGAL PROPHYLAXIS
  13. PREDNISOLONE. [Suspect]
     Active Substance: PREDNISOLONE
     Dosage: 17.5 MG, 1D
     Route: 048
     Dates: start: 20180510, end: 20180523
  14. PREDNISOLONE. [Suspect]
     Active Substance: PREDNISOLONE
     Dosage: 10 MG, 1D
     Route: 048
     Dates: start: 20180907
  15. BAKTAR [Concomitant]
     Active Substance: SULFAMETHOXAZOLE\TRIMETHOPRIM
     Indication: ANTIFUNGAL PROPHYLAXIS
     Dosage: UNK
  16. CELLCEPT [Concomitant]
     Active Substance: MYCOPHENOLATE MOFETIL\MYCOPHENOLATE MOFETIL HYDROCHLORIDE
     Indication: SYSTEMIC LUPUS ERYTHEMATOSUS
  17. PREDNISOLONE. [Suspect]
     Active Substance: PREDNISOLONE
     Dosage: 15 MG, 1D
     Route: 048
     Dates: start: 20180524, end: 20180619
  18. PREDNISOLONE. [Suspect]
     Active Substance: PREDNISOLONE
     Dosage: 15 MG, 1D
     Route: 048
     Dates: start: 20180808, end: 20180906
  19. RISPERIDONE. [Concomitant]
     Active Substance: RISPERIDONE
     Indication: CENTRAL NERVOUS SYSTEM LUPUS
  20. CELLCEPT [Concomitant]
     Active Substance: MYCOPHENOLATE MOFETIL\MYCOPHENOLATE MOFETIL HYDROCHLORIDE
     Indication: CENTRAL NERVOUS SYSTEM LUPUS
  21. BELIMUMAB [Suspect]
     Active Substance: BELIMUMAB
     Indication: SYSTEMIC LUPUS ERYTHEMATOSUS
     Dosage: 10 MG/KG, ONCE IN 2 WEEKS
     Route: 041
     Dates: start: 20180319, end: 20180402
  22. GLAKAY [Concomitant]
     Active Substance: MENATETRENONE
     Indication: OSTEOPOROSIS PROPHYLAXIS
  23. PREDNISOLONE. [Suspect]
     Active Substance: PREDNISOLONE
     Indication: SYSTEMIC LUPUS ERYTHEMATOSUS
     Dosage: 50 MG, 1D
     Route: 048
     Dates: start: 20180219, end: 20180319
  24. RISPERIDONE. [Concomitant]
     Active Substance: RISPERIDONE
     Indication: SYSTEMIC LUPUS ERYTHEMATOSUS

REACTIONS (3)
  - Cytomegalovirus infection [Recovered/Resolved]
  - Back pain [Recovered/Resolved]
  - Cystitis [Recovered/Resolved]

NARRATIVE: CASE EVENT DATE: 20180405
